FAERS Safety Report 15748636 (Version 1)
Quarter: 2018Q4

REPORT INFORMATION
  Report Type: Spontaneous
  Country: IT (occurrence: IT)
  Receive Date: 20181221
  Receipt Date: 20181221
  Transmission Date: 20190205
  Serious: Yes (Hospitalization)
  Sender: FDA-Public Use
  Company Number: IT-TEVA-2018-IT-989468

PATIENT
  Age: 68 Year
  Sex: Female

DRUGS (3)
  1. GEMCITABINE [Suspect]
     Active Substance: GEMCITABINE\GEMCITABINE HYDROCHLORIDE
     Indication: RECTAL CANCER
     Route: 042
     Dates: start: 20180801, end: 20181123
  2. ARANESP 60 MICROGRAMS SOLUTION FOR INJECTION IN PRE-FILLED SYRINGE [Concomitant]
     Route: 065
  3. ABSTRAL [Concomitant]
     Active Substance: FENTANYL CITRATE
     Route: 065

REACTIONS (2)
  - Diarrhoea [Recovering/Resolving]
  - Abdominal pain [Recovering/Resolving]

NARRATIVE: CASE EVENT DATE: 20181124
